FAERS Safety Report 5609458-3 (Version None)
Quarter: 2008Q1

REPORT INFORMATION
  Report Type: 
  Country: None (occurrence: None)
  Receive Date: 20080131
  Receipt Date: 20080119
  Transmission Date: 20080703
  Serious: Yes (Other)
  Sender: FDA-Public Use
  Company Number: DE-AMGEN-UK259374

PATIENT
  Sex: Female
  Weight: 72 kg

DRUGS (6)
  1. NEULASTA [Suspect]
     Indication: CHEMOTHERAPY
     Route: 058
     Dates: start: 20071102, end: 20071214
  2. DOCETAXEL [Concomitant]
     Route: 065
     Dates: start: 20071102
  3. DOXORUBICIN HYDROCHLORIDE [Concomitant]
     Route: 065
     Dates: start: 20071102
  4. CYCLOPHOSPHAMIDE [Concomitant]
     Route: 065
     Dates: start: 20071102
  5. DEXAMETHASONE TAB [Concomitant]
     Route: 065
     Dates: start: 20071102
  6. UNSPECIFIED ANTIEMETIC [Concomitant]
     Route: 065
     Dates: start: 20071102

REACTIONS (1)
  - THROMBOCYTOPENIA [None]
